FAERS Safety Report 5924602-6 (Version None)
Quarter: 2008Q4

REPORT INFORMATION
  Report Type: 
  Country: None (occurrence: None)
  Receive Date: 20081016
  Receipt Date: 20080929
  Transmission Date: 20090506
  Serious: Yes (Hospitalization)
  Sender: FDA-Public Use
  Company Number: 2008S1009657

PATIENT
  Age: 82 Year
  Sex: Male
  Weight: 80.7403 kg

DRUGS (1)
  1. PHOSPHOSODA FLAVOR NOT SPECIFIED [Suspect]
     Indication: COLONOSCOPY
     Dosage: 22.5 ML; X1; PO
     Route: 048
     Dates: start: 20080205, end: 20080206

REACTIONS (6)
  - ABDOMINAL DISTENSION [None]
  - ABDOMINAL PAIN [None]
  - ASTHENIA [None]
  - BLOOD DISORDER [None]
  - INFECTION [None]
  - RENAL INJURY [None]
